FAERS Safety Report 8732559 (Version 2)
Quarter: 2015Q3

REPORT INFORMATION
  Report Type: Report from Study
  Country: US (occurrence: US)
  Receive Date: 20120820
  Receipt Date: 20150710
  Transmission Date: 20151125
  Serious: Yes (Hospitalization, Other)
  Sender: FDA-Public Use
  Company Number: US-ROCHE-1101589

PATIENT
  Age: 44 Year
  Sex: Male

DRUGS (16)
  1. CAPOTEN [Concomitant]
     Active Substance: CAPTOPRIL
     Route: 065
  2. TRIDIL [Concomitant]
     Active Substance: NITROGLYCERIN
  3. LASIX [Concomitant]
     Active Substance: FUROSEMIDE
  4. OXACILLIN [Concomitant]
     Active Substance: OXACILLIN SODIUM
     Route: 065
  5. NITROLINGUAL [Concomitant]
     Active Substance: NITROGLYCERIN
     Route: 065
  6. ACTIVASE [Suspect]
     Active Substance: ALTEPLASE
     Route: 065
  7. TAMBOCOR [Concomitant]
     Active Substance: FLECAINIDE ACETATE
  8. LANOXIN [Concomitant]
     Active Substance: DIGOXIN
     Route: 065
  9. PROCARDIA (UNITED STATES) [Concomitant]
     Route: 065
  10. ASPIRIN. [Concomitant]
     Active Substance: ASPIRIN
     Route: 048
  11. ACTIVASE [Suspect]
     Active Substance: ALTEPLASE
     Indication: MYOCARDIAL INFARCTION
     Route: 065
  12. ACTIVASE [Suspect]
     Active Substance: ALTEPLASE
     Route: 065
  13. PERI-COLACE (UNITED STATES) [Concomitant]
  14. HEPARIN [Concomitant]
     Active Substance: HEPARIN SODIUM
  15. MICRO K EXTENCAPS [Concomitant]
  16. NITRO-DUR [Concomitant]
     Active Substance: NITROGLYCERIN
     Dosage: 15 MG PATCH PER 24 HOURS
     Route: 065

REACTIONS (12)
  - Pyrexia [Unknown]
  - Chest pain [Recovered/Resolved]
  - Atrial flutter [Unknown]
  - Gastrointestinal disorder [Unknown]
  - Ventricular tachycardia [Unknown]
  - Blood pressure decreased [Unknown]
  - Left ventricular failure [Unknown]
  - Fatigue [Unknown]
  - Pericarditis [Unknown]
  - Pain [Unknown]
  - Feeding disorder [Unknown]
  - Constipation [Unknown]

NARRATIVE: CASE EVENT DATE: 19890228
